FAERS Safety Report 11230350 (Version 3)
Quarter: 2015Q4

REPORT INFORMATION
  Report Type: Spontaneous
  Country: GB (occurrence: GB)
  Receive Date: 20150701
  Receipt Date: 20151027
  Transmission Date: 20160304
  Serious: Yes (Death, Other)
  Sender: FDA-Public Use
  Company Number: GB-BRISTOL-MYERS SQUIBB COMPANY-BMS-2015-035746

PATIENT

DRUGS (7)
  1. HYDREA [Suspect]
     Active Substance: HYDROXYUREA
     Indication: ACUTE LYMPHOCYTIC LEUKAEMIA RECURRENT
     Route: 065
  2. RITUXIMAB [Suspect]
     Active Substance: RITUXIMAB
     Indication: ACUTE MYELOID LEUKAEMIA
     Dosage: UNK
     Route: 065
  3. HYDREA [Suspect]
     Active Substance: HYDROXYUREA
     Indication: ACUTE LYMPHOCYTIC LEUKAEMIA
  4. IMATINIB [Suspect]
     Active Substance: IMATINIB
     Indication: ACUTE LYMPHOCYTIC LEUKAEMIA
     Dosage: UNK
     Route: 065
  5. PREDNISOLONE. [Suspect]
     Active Substance: PREDNISOLONE
     Indication: PRODUCT USED FOR UNKNOWN INDICATION
     Route: 065
  6. VINCRISTINE [Suspect]
     Active Substance: VINCRISTINE
     Indication: ACUTE LYMPHOCYTIC LEUKAEMIA
     Route: 065
  7. DASATINIB [Suspect]
     Active Substance: DASATINIB
     Indication: ACUTE LYMPHOCYTIC LEUKAEMIA
     Route: 065

REACTIONS (3)
  - Off label use [Unknown]
  - Malignant neoplasm progression [Unknown]
  - Death [Fatal]
